FAERS Safety Report 11030719 (Version 2)
Quarter: 2015Q3

REPORT INFORMATION
  Report Type: Spontaneous
  Country: FR (occurrence: FR)
  Receive Date: 20150415
  Receipt Date: 20150717
  Transmission Date: 20151125
  Serious: Yes (Hospitalization, Other)
  Sender: FDA-Public Use
  Company Number: FR-BRISTOL-MYERS SQUIBB COMPANY-BMS-2015-015931

PATIENT
  Age: 34 Year
  Sex: Female
  Weight: 51 kg

DRUGS (9)
  1. LYSODREN [Suspect]
     Active Substance: MITOTANE
     Dosage: 4 DF, QD
     Route: 048
     Dates: start: 20140715, end: 20140728
  2. ESOMEPRAZOLE [Suspect]
     Active Substance: ESOMEPRAZOLE
     Indication: ABDOMINAL PAIN UPPER
     Dosage: 80 MG, QD
     Route: 065
  3. HYDROCORTISONE. [Concomitant]
     Active Substance: HYDROCORTISONE
     Indication: ADRENAL INSUFFICIENCY
     Dosage: 60 MG, QD
     Route: 065
     Dates: start: 2014
  4. LYSODREN [Suspect]
     Active Substance: MITOTANE
     Indication: ADJUVANT THERAPY
     Dosage: 9 DF, QD
     Route: 048
     Dates: start: 20140501, end: 20140624
  5. LYSODREN [Suspect]
     Active Substance: MITOTANE
     Dosage: 6 DF, QD
     Route: 048
     Dates: start: 20140625, end: 20140714
  6. LYSODREN [Suspect]
     Active Substance: MITOTANE
     Dosage: 3 DF, UNK
     Route: 048
     Dates: start: 20141126
  7. INEXIUM                            /01479302/ [Suspect]
     Active Substance: ESOMEPRAZOLE MAGNESIUM
     Indication: METASTASIS
     Dosage: 40 MG, QD
     Route: 048
     Dates: start: 201404
  8. INEXIUM                            /01479302/ [Suspect]
     Active Substance: ESOMEPRAZOLE MAGNESIUM
     Dosage: 40 MG, BID
     Route: 048
     Dates: start: 201406
  9. FLUCORTAC [Concomitant]
     Active Substance: FLUDROCORTISONE ACETATE
     Indication: ADRENAL INSUFFICIENCY
     Dosage: 50 ?G, QD
     Route: 065
     Dates: start: 20140430

REACTIONS (3)
  - Delirium [Recovered/Resolved]
  - Off label use [Unknown]
  - Major depression [Unknown]

NARRATIVE: CASE EVENT DATE: 20140501
